FAERS Safety Report 5110357-4 (Version None)
Quarter: 2006Q3

REPORT INFORMATION
  Report Type: 
  Country: None (occurrence: None)
  Receive Date: 20060921
  Receipt Date: 20060911
  Transmission Date: 20061208
  Serious: Yes (Hospitalization)
  Sender: FDA-Public Use
  Company Number: PHHO2006JP15222

PATIENT
  Age: 71 Year
  Sex: Male

DRUGS (2)
  1. GLEEVEC [Suspect]
     Indication: GASTROINTESTINAL STROMAL TUMOUR
     Dosage: 400 MG, QD
     Route: 048
     Dates: start: 20030730, end: 20031001
  2. GLEEVEC [Suspect]
     Dosage: 300 MG, QD
     Route: 048
     Dates: start: 20031002

REACTIONS (8)
  - DIARRHOEA [None]
  - DRUG ERUPTION [None]
  - ECZEMA [None]
  - FACE OEDEMA [None]
  - HAEMOGLOBIN DECREASED [None]
  - NAUSEA [None]
  - OTITIS EXTERNA [None]
  - WHITE BLOOD CELL COUNT DECREASED [None]
